FAERS Safety Report 24601381 (Version 11)
Quarter: 2025Q4

REPORT INFORMATION
  Report Type: Report from Study
  Country: GB (occurrence: GB)
  Receive Date: 20241111
  Receipt Date: 20251115
  Transmission Date: 20260118
  Serious: No
  Sender: AMGEN
  Company Number: GB-Vifor (International) Inc.-VIT-2024-09057

PATIENT
  Age: 73 Year
  Sex: Female
  Weight: 44.6 kg

DRUGS (17)
  1. AVACOPAN [Suspect]
     Active Substance: AVACOPAN
     Indication: Anti-neutrophil cytoplasmic antibody positive vasculitis
     Dosage: LAST DOSE PRIOR TO ONSET OF SAE ON 29-SEP-2024.
     Route: 048
     Dates: start: 20240917, end: 20240929
  2. AVACOPAN [Suspect]
     Active Substance: AVACOPAN
     Dosage: 30 MG, BID
     Route: 048
     Dates: start: 20241003
  3. RITUXIMAB [Concomitant]
     Active Substance: RITUXIMAB
     Indication: Anti-neutrophil cytoplasmic antibody positive vasculitis
     Dosage: 1000 MG, TOT
     Route: 040
     Dates: start: 20240806, end: 20240806
  4. RITUXIMAB [Concomitant]
     Active Substance: RITUXIMAB
     Dosage: 1000 MG, TOT
     Route: 040
     Dates: start: 20240827, end: 20240827
  5. RITUXIMAB [Concomitant]
     Active Substance: RITUXIMAB
     Dosage: 500 MG, TOT
     Route: 040
     Dates: start: 20250826, end: 20250826
  6. PREDNISOLONE [Concomitant]
     Active Substance: PREDNISOLONE
     Indication: Anti-neutrophil cytoplasmic antibody positive vasculitis
     Dosage: 60 MG, QD COMPLETION OF PLANNED COURSE
     Route: 048
     Dates: start: 20240729, end: 20240801
  7. PREDNISOLONE [Concomitant]
     Active Substance: PREDNISOLONE
     Dosage: 40 MG, QD COMPLETION OF PLANNED COURSE
     Route: 048
     Dates: start: 20240802, end: 20240806
  8. PREDNISOLONE [Concomitant]
     Active Substance: PREDNISOLONE
     Dosage: 20 MG, QD COMPLETION OF PLANNED COURSE
     Route: 048
     Dates: start: 20240807, end: 20240813
  9. PREDNISOLONE [Concomitant]
     Active Substance: PREDNISOLONE
     Dosage: 17.5 MG, QD COMPLETION OF PLANNED COURSE
     Route: 048
     Dates: start: 20240814, end: 20240820
  10. PREDNISOLONE [Concomitant]
     Active Substance: PREDNISOLONE
     Dosage: 15 MG, QD COMPLETION OF PLANNED COURSE
     Route: 048
     Dates: start: 20240821, end: 20240827
  11. PREDNISOLONE [Concomitant]
     Active Substance: PREDNISOLONE
     Dosage: 20 MG, QD COMPLETION OF PLANNED COURSE
     Route: 048
     Dates: start: 20240828, end: 20240930
  12. PREDNISOLONE [Concomitant]
     Active Substance: PREDNISOLONE
     Dosage: 15 MG, QD COMPLETION OF PLANNED COURSE
     Route: 048
     Dates: start: 20241001, end: 20241007
  13. PREDNISOLONE [Concomitant]
     Active Substance: PREDNISOLONE
     Dosage: 10 MG, QD COMPLETION OF PLANNED COURSE
     Route: 048
     Dates: start: 20241008, end: 20241013
  14. PREDNISOLONE [Concomitant]
     Active Substance: PREDNISOLONE
     Dosage: 5 MG, QD COMPLETION OF PLANNED COURSE
     Route: 048
     Dates: start: 20241014, end: 20241020
  15. PREDNISOLONE [Concomitant]
     Active Substance: PREDNISOLONE
     Dosage: 5 MG, QOD, COMPLETION OF PLANNED COURSE
     Route: 048
     Dates: start: 20241021, end: 20241027
  16. METHYLPREDNISOLONE [Concomitant]
     Active Substance: METHYLPREDNISOLONE
     Indication: Anti-neutrophil cytoplasmic antibody positive vasculitis
     Dosage: 500 MG, OD
     Route: 040
     Dates: start: 20240726, end: 20240728
  17. METHYLPREDNISOLONE [Concomitant]
     Active Substance: METHYLPREDNISOLONE
     Dosage: 100 MG, TOT
     Route: 040
     Dates: start: 20250826, end: 20250826

REACTIONS (1)
  - Hyponatraemia [Recovered/Resolved]
